FAERS Safety Report 25223255 (Version 1)
Quarter: 2025Q2

REPORT INFORMATION
  Report Type: Spontaneous
  Country: US (occurrence: US)
  Receive Date: 20250422
  Receipt Date: 20250422
  Transmission Date: 20250716
  Serious: Yes (Life-Threatening, Hospitalization)
  Sender: DR REDDYS
  Company Number: None

PATIENT
  Age: 60 Year
  Sex: Male

DRUGS (1)
  1. AMIODARONE [Suspect]
     Active Substance: AMIODARONE
     Indication: Product used for unknown indication

REACTIONS (7)
  - Thyroiditis [Unknown]
  - Thyrotoxic crisis [Unknown]
  - Aortic valve incompetence [Unknown]
  - Right ventricular dysfunction [Unknown]
  - Mental status changes [Unknown]
  - Hypoxia [Unknown]
  - Ventricular tachycardia [Unknown]
